FAERS Safety Report 9765184 (Version 1)
Quarter: 2013Q4

REPORT INFORMATION
  Report Type: Spontaneous
  Country: US (occurrence: US)
  Receive Date: 20131217
  Receipt Date: 20131217
  Transmission Date: 20140711
  Serious: No
  Sender: FDA-Public Use
  Company Number: US-GLAXOSMITHKLINE-A1015812A

PATIENT
  Sex: Male

DRUGS (1)
  1. SORIATANE [Suspect]
     Route: 048
     Dates: end: 201303

REACTIONS (5)
  - Chapped lips [Unknown]
  - Epistaxis [Unknown]
  - Ear swelling [Unknown]
  - Skin atrophy [Unknown]
  - Drug ineffective [Unknown]
